FAERS Safety Report 7590316-2 (Version None)
Quarter: 2011Q3

REPORT INFORMATION
  Report Type: 
  Country: None (occurrence: None)
  Receive Date: 20110705
  Receipt Date: 20110628
  Transmission Date: 20111222
  Serious: Yes (Life-Threatening)
  Sender: FDA-Public Use
  Company Number: FR-ASTRAZENECA-2011SE38849

PATIENT
  Age: 64 Year
  Sex: Female

DRUGS (4)
  1. XYLOCAINE [Suspect]
     Route: 065
     Dates: start: 20110608, end: 20110608
  2. PLAQUENIL [Concomitant]
  3. PROPRANOLOL [Concomitant]
  4. PREDNISONE [Concomitant]

REACTIONS (2)
  - COMA [None]
  - CONVULSION [None]
